FAERS Safety Report 16454095 (Version 2)
Quarter: 2019Q2

REPORT INFORMATION
  Report Type: Report from Study
  Country: CN (occurrence: CN)
  Receive Date: 20190619
  Receipt Date: 20190628
  Transmission Date: 20190711
  Serious: Yes (Hospitalization)
  Sender: FDA-Public Use
  Company Number: CN-PFIZER INC-2019257841

PATIENT
  Age: 67 Year
  Sex: Male
  Weight: 77 kg

DRUGS (8)
  1. ENZALUTAMIDE [Suspect]
     Active Substance: ENZALUTAMIDE
     Indication: PROSTATE CANCER
     Dosage: 480 MG, ONCE
     Route: 048
  2. ESTRAMUSTINE PHOSPHATE [Suspect]
     Active Substance: ESTRAMUSTINE PHOSPHATE
     Indication: PROSTATE CANCER
     Dosage: 280 MG, TWICE
     Route: 048
     Dates: start: 20190601
  3. COW BEZOAR [Concomitant]
     Indication: COUGH
     Dosage: 3G TWICE
     Route: 048
     Dates: start: 20190527
  4. FENTANYL. [Suspect]
     Active Substance: FENTANYL
     Indication: BONE PAIN
     Dosage: 4.2 MG, ONCE (ON THE CHEST)
     Dates: start: 20190601, end: 20190601
  5. HERBAL NOS [Concomitant]
     Active Substance: HERBALS
     Indication: COUGH
     Dosage: 1 SPOON TWICE
     Route: 048
     Dates: start: 20190522
  6. ENZALUTAMIDE [Suspect]
     Active Substance: ENZALUTAMIDE
     Indication: PROSTATE CANCER
     Dosage: UNK UNK, UNKNOWN FREQ.
     Dates: start: 20150825
  7. AMINOPHENAZONE/PHENACETIN [Suspect]
     Active Substance: AMINOPHENAZONE\PHENACETIN
     Indication: BONE PAIN
     Dosage: UNK, SINGLE
     Route: 048
     Dates: start: 20190602
  8. HERBAL NOS [Suspect]
     Active Substance: HERBALS
     Indication: PROSTATE CANCER
     Dosage: 0.8 G, THREE TIMES
     Route: 048
     Dates: start: 20190527, end: 20190603

REACTIONS (1)
  - Bone pain [Not Recovered/Not Resolved]

NARRATIVE: CASE EVENT DATE: 20190606
